FAERS Safety Report 21300549 (Version 1)
Quarter: 2022Q3

REPORT INFORMATION
  Report Type: Spontaneous
  Country: NL (occurrence: NL)
  Receive Date: 20220907
  Receipt Date: 20220907
  Transmission Date: 20221026
  Serious: Yes (Hospitalization)
  Sender: FDA-Public Use
  Company Number: NL-AstraZeneca-2022A295391

PATIENT

DRUGS (2)
  1. ZOLADEX [Suspect]
     Active Substance: GOSERELIN ACETATE
     Indication: Product used for unknown indication
     Dosage: 10.8 MILLIGRAM, EVERY THREE MONTHS
     Route: 058
     Dates: start: 20200923, end: 20220607
  2. ZOLADEX [Suspect]
     Active Substance: GOSERELIN ACETATE
     Indication: Product used for unknown indication
     Dosage: UNK
     Route: 065

REACTIONS (5)
  - Incontinence [Unknown]
  - Abnormal faeces [Unknown]
  - Vomiting [Unknown]
  - Asthenia [Unknown]
  - Malaise [Unknown]
